FAERS Safety Report 16651710 (Version 1)
Quarter: 2019Q3

REPORT INFORMATION
  Report Type: Spontaneous
  Country: US (occurrence: US)
  Receive Date: 20190730
  Receipt Date: 20190730
  Transmission Date: 20191004
  Serious: Yes (Other)
  Sender: FDA-Public Use
  Company Number: None

PATIENT
  Age: 59 Year
  Sex: Female
  Weight: 66.15 kg

DRUGS (1)
  1. CVS HEALTH EXTRA STRENGTH LUBRICANT GEL DROPS [CARBOXYMETHYLCELLULOSE SODIUM] [Suspect]
     Active Substance: CARBOXYMETHYLCELLULOSE SODIUM
     Indication: DRY EYE
     Dates: end: 20190712

REACTIONS (6)
  - Condition aggravated [None]
  - Eye infection [None]
  - Hordeolum [None]
  - Photosensitivity reaction [None]
  - Recalled product administered [None]
  - Product contamination [None]

NARRATIVE: CASE EVENT DATE: 20190703
